FAERS Safety Report 7045097-8 (Version None)
Quarter: 2010Q4

REPORT INFORMATION
  Report Type: 
  Country: None (occurrence: None)
  Receive Date: 20101014
  Receipt Date: 20100219
  Transmission Date: 20110411
  Serious: No
  Sender: FDA-Public Use
  Company Number: US-BRISTOL-MYERS SQUIBB COMPANY-14870398

PATIENT

DRUGS (1)
  1. GLUCOPHAGE XR [Suspect]

REACTIONS (1)
  - ADVERSE EVENT [None]
